FAERS Safety Report 7928537-9 (Version None)
Quarter: 2011Q4

REPORT INFORMATION
  Report Type: 
  Country: None (occurrence: None)
  Receive Date: 20111118
  Receipt Date: 20111107
  Transmission Date: 20120403
  Serious: Yes (Hospitalization)
  Sender: FDA-Public Use
  Company Number: JP-BRISTOL-MYERS SQUIBB COMPANY-16235921

PATIENT
  Age: 4 Decade
  Sex: Male
  Weight: 80 kg

DRUGS (3)
  1. AMARYL [Concomitant]
     Route: 048
  2. METFORMIN HCL [Suspect]
     Indication: DIABETES MELLITUS
     Dosage: STARTED AT 1000MG
     Route: 048
     Dates: start: 20111028
  3. JANUVIA [Suspect]
     Route: 048

REACTIONS (3)
  - DIABETIC COMPLICATION [None]
  - DYSPEPSIA [None]
  - DECREASED APPETITE [None]
